FAERS Safety Report 19628055 (Version 1)
Quarter: 2021Q3

REPORT INFORMATION
  Report Type: Spontaneous
  Country: US (occurrence: US)
  Receive Date: 20210729
  Receipt Date: 20210729
  Transmission Date: 20211014
  Serious: Yes (Other)
  Sender: FDA-Public Use
  Company Number: None

PATIENT
  Age: 58 Year
  Sex: Male
  Weight: 56.7 kg

DRUGS (3)
  1. IMDEVIMAB. [Concomitant]
     Active Substance: IMDEVIMAB
     Dates: start: 20210726, end: 20210726
  2. CASIRIVIMAB WITH IMDEVIMAB [Suspect]
     Active Substance: CASIRIVIMAB\IMDEVIMAB
     Indication: COVID-19
     Dates: start: 20210726
  3. CASARIVIMAB [Concomitant]
     Dates: start: 20210726, end: 20210726

REACTIONS (1)
  - Rash [None]

NARRATIVE: CASE EVENT DATE: 20210727
